FAERS Safety Report 13386502 (Version 1)
Quarter: 2017Q1

REPORT INFORMATION
  Report Type: Report from Study
  Country: US (occurrence: US)
  Receive Date: 20170330
  Receipt Date: 20170330
  Transmission Date: 20170429
  Serious: Yes (Other)
  Sender: FDA-Public Use
  Company Number: US-ROCHE-1729791

PATIENT

DRUGS (9)
  1. BENDAMUSTINE [Suspect]
     Active Substance: BENDAMUSTINE
     Indication: MANTLE CELL LYMPHOMA
     Route: 042
  2. DOXORUBICIN [Suspect]
     Active Substance: DOXORUBICIN
     Indication: MANTLE CELL LYMPHOMA
     Dosage: DAYS 5-7
     Route: 042
  3. CYTARABINE. [Suspect]
     Active Substance: CYTARABINE
     Indication: MANTLE CELL LYMPHOMA
     Dosage: DAYS 3-4
     Route: 042
  4. RITUXIMAB [Suspect]
     Active Substance: RITUXIMAB
     Indication: MANTLE CELL LYMPHOMA
     Dosage: DAY 1
     Route: 042
  5. DEXAMETHASONE. [Suspect]
     Active Substance: DEXAMETHASONE
     Indication: MANTLE CELL LYMPHOMA
     Dosage: DAYS 2-5, 12-15
     Route: 065
  6. VINCRISTINE [Suspect]
     Active Substance: VINCRISTINE
     Indication: MANTLE CELL LYMPHOMA
     Dosage: DAYS 5 AND 12
     Route: 042
  7. METHOTREXATE. [Suspect]
     Active Substance: METHOTREXATE
     Indication: MANTLE CELL LYMPHOMA
     Dosage: OVER 2 HOURS, DAY 2
     Route: 042
  8. METHOTREXATE. [Suspect]
     Active Substance: METHOTREXATE
     Dosage: OVER 22 HOURS, DAY 2
     Route: 042
  9. CYCLOPHOSPHAMIDE. [Suspect]
     Active Substance: CYCLOPHOSPHAMIDE
     Indication: MANTLE CELL LYMPHOMA
     Dosage: DAYS 2-4
     Route: 042

REACTIONS (17)
  - Anaemia [Unknown]
  - Rash [Unknown]
  - Syncope [Unknown]
  - Neutropenia [Unknown]
  - Thrombocytopenia [Unknown]
  - Febrile neutropenia [Unknown]
  - Aspartate aminotransferase increased [Unknown]
  - Nausea [Unknown]
  - Hyperglycaemia [Unknown]
  - Device related infection [Unknown]
  - Epistaxis [Unknown]
  - Pancytopenia [Unknown]
  - Hypophosphataemia [Unknown]
  - Alanine aminotransferase increased [Unknown]
  - Hypokalaemia [Unknown]
  - Dehydration [Unknown]
  - Diarrhoea [Unknown]
